FAERS Safety Report 13948901 (Version 1)
Quarter: 2017Q3

REPORT INFORMATION
  Report Type: Spontaneous
  Country: GB (occurrence: GB)
  Receive Date: 20170908
  Receipt Date: 20170908
  Transmission Date: 20171128
  Serious: Yes (Other)
  Sender: FDA-Public Use
  Company Number: GB-TEVA-803166ACC

PATIENT
  Age: 90 Year
  Sex: Female
  Weight: 76 kg

DRUGS (14)
  1. TRIMETHOPRIM. [Suspect]
     Active Substance: TRIMETHOPRIM
     Dates: start: 20170817
  2. SENNA [Concomitant]
     Active Substance: SENNA LEAF\SENNOSIDES\SENNOSIDES A AND B
     Dosage: 1 DOSAGE FORMS DAILY; NIGHT
     Dates: start: 20170720
  3. LETROZOLE. [Concomitant]
     Active Substance: LETROZOLE
     Dosage: 1 DOSAGE FORMS DAILY; MORNING
     Dates: start: 20161215
  4. COSMOCOL [Concomitant]
     Dosage: 1 DOSAGE FORMS DAILY; MORNING
     Dates: start: 20170720
  5. HYDROCORTISONE. [Concomitant]
     Active Substance: HYDROCORTISONE
     Dosage: 2 DOSAGE FORMS DAILY;
     Dates: start: 20170817
  6. RISEDRONATE SODIUM. [Concomitant]
     Active Substance: RISEDRONATE SODIUM
     Dosage: WEDNESDAY
     Dates: start: 20161215, end: 20170616
  7. ZEROBASE [Concomitant]
     Dosage: 1 DOSAGE FORMS DAILY;
     Dates: start: 20160119
  8. CLARITHROMYCIN. [Concomitant]
     Active Substance: CLARITHROMYCIN
     Dosage: 2 DOSAGE FORMS DAILY;
     Dates: start: 20170707, end: 20170714
  9. ADCAL [Concomitant]
     Active Substance: CALCIUM CARBONATE
     Dosage: 4 DOSAGE FORMS DAILY;
     Dates: start: 20161215
  10. CYANOCOBALAMIN. [Concomitant]
     Active Substance: CYANOCOBALAMIN
     Dosage: 2 DOSAGE FORMS DAILY;
     Dates: start: 20161215
  11. FUROSEMIDE. [Concomitant]
     Active Substance: FUROSEMIDE
     Dosage: 2 DOSAGE FORMS DAILY; MORNING
     Dates: start: 20161215
  12. LEVOTHYROXINE. [Concomitant]
     Active Substance: LEVOTHYROXINE
     Dosage: 1 DOSAGE FORMS DAILY; EACH MORNING
     Dates: start: 20161215
  13. FOLIC ACID. [Concomitant]
     Active Substance: FOLIC ACID
     Dosage: 1 DOSAGE FORMS DAILY; MORNING
     Dates: start: 20170817
  14. FUCIBET [Concomitant]
     Dosage: APPLY UNDER EACH DRESSING CNAGE TIMES TWO WEEKS .
     Dates: start: 20170707, end: 20170714

REACTIONS (1)
  - Acute kidney injury [Recovering/Resolving]

NARRATIVE: CASE EVENT DATE: 20170818
